FAERS Safety Report 13448958 (Version 2)
Quarter: 2017Q2

REPORT INFORMATION
  Report Type: Spontaneous
  Country: IN (occurrence: IN)
  Receive Date: 20170417
  Receipt Date: 20170504
  Transmission Date: 20170830
  Serious: Yes (Other)
  Sender: FDA-Public Use
  Company Number: IN-AKORN PHARMACEUTICALS-2017AKN00443

PATIENT
  Age: 19 Year
  Sex: Male

DRUGS (1)
  1. TRIAMCINOLONE ACETONIDE. [Suspect]
     Active Substance: TRIAMCINOLONE ACETONIDE
     Indication: JOINT ANKYLOSIS
     Dosage: 40 MG, ONCE
     Route: 014
     Dates: start: 20160818, end: 20160818

REACTIONS (3)
  - Drug administration error [Recovered/Resolved]
  - Blindness unilateral [Not Recovered/Not Resolved]
  - Retinal artery occlusion [Not Recovered/Not Resolved]

NARRATIVE: CASE EVENT DATE: 20160818
